FAERS Safety Report 19888491 (Version 1)
Quarter: 2021Q3

REPORT INFORMATION
  Report Type: Spontaneous
  Country: US (occurrence: US)
  Receive Date: 20210928
  Receipt Date: 20210928
  Transmission Date: 20211014
  Serious: Yes (Other)
  Sender: FDA-Public Use
  Company Number: US-COLGATE PALMOLIVE COMPANY-20210902086

PATIENT
  Sex: Female

DRUGS (1)
  1. LADY SPEED INVISIBLE DRY ANTIPERSPIRANT DEODORANT [Suspect]
     Active Substance: ALUMINUM ZIRCONIUM TETRACHLOROHYDREX GLY
     Dosage: UNKNOWN DOSE, EVERY MORNING

REACTIONS (3)
  - Blister [Recovering/Resolving]
  - Breast tenderness [Recovering/Resolving]
  - Application site burn [Recovering/Resolving]

NARRATIVE: CASE EVENT DATE: 2019
